FAERS Safety Report 17263167 (Version 2)
Quarter: 2020Q1

REPORT INFORMATION
  Report Type: Spontaneous
  Country: ME (occurrence: ME)
  Receive Date: 20200113
  Receipt Date: 20200131
  Transmission Date: 20200409
  Serious: Yes (Other)
  Sender: FDA-Public Use
  Company Number: NVSC2020ME005789

PATIENT
  Age: 10 Year
  Sex: Female
  Weight: 45 kg

DRUGS (1)
  1. LENDACIN [Suspect]
     Active Substance: CEFTRIAXONE SODIUM
     Indication: PYREXIA
     Dosage: 2 DF, BID (DF: 1 G, 2X2 FL.)
     Route: 042
     Dates: start: 20191231, end: 20191231

REACTIONS (6)
  - Urticaria [Recovered/Resolved]
  - Lip oedema [Recovered/Resolved]
  - Pulmonary pain [Unknown]
  - Hypoaesthesia oral [Unknown]
  - Eyelid oedema [Recovered/Resolved]
  - Hypotension [Recovered/Resolved]

NARRATIVE: CASE EVENT DATE: 20191231
